FAERS Safety Report 13707610 (Version 1)
Quarter: 2017Q2

REPORT INFORMATION
  Report Type: Report from Study
  Country: None (occurrence: US)
  Receive Date: 20170630
  Receipt Date: 20170630
  Transmission Date: 20170830
  Serious: No
  Sender: FDA-Public Use
  Company Number: US-IPSEN BIOPHARMACEUTICALS, INC.-2015-1094

PATIENT
  Sex: Female
  Weight: 150 kg

DRUGS (1)
  1. SOMATULINE DEPOT [Suspect]
     Active Substance: LANREOTIDE ACETATE
     Indication: ACROMEGALY
     Dosage: 60MG
     Route: 065
     Dates: start: 20141204

REACTIONS (3)
  - Diarrhoea [Recovering/Resolving]
  - Bronchitis chronic [Recovering/Resolving]
  - Sinus headache [Recovering/Resolving]
